FAERS Safety Report 11836040 (Version 1)
Quarter: 2015Q4

REPORT INFORMATION
  Report Type: Spontaneous
  Country: US (occurrence: US)
  Receive Date: 20151215
  Receipt Date: 20151215
  Transmission Date: 20160305
  Serious: No
  Sender: FDA-Public Use
  Company Number: US-BAYER-2015-489319

PATIENT
  Age: 77 Year
  Sex: Female
  Weight: 63.49 kg

DRUGS (4)
  1. MIRALAX [Suspect]
     Active Substance: POLYETHYLENE GLYCOL 3350
     Indication: COLITIS MICROSCOPIC
     Dosage: 1 DF, QD
     Route: 048
     Dates: start: 201512
  2. OMEGA 3 [Concomitant]
     Active Substance: OMEGA-3 FATTY ACIDS
  3. CYMBALTA [Concomitant]
     Active Substance: DULOXETINE HYDROCHLORIDE
  4. ONE-A-DAY [VIT C,B12,D2,B3,B6,RETINOL,B2,B1 MONONITR] [Concomitant]

REACTIONS (2)
  - Product use issue [None]
  - Product use issue [None]

NARRATIVE: CASE EVENT DATE: 201512
